FAERS Safety Report 8943868 (Version 3)
Quarter: 2013Q1

REPORT INFORMATION
  Report Type: Spontaneous
  Country: US (occurrence: US)
  Receive Date: 20121204
  Receipt Date: 20130301
  Transmission Date: 20140127
  Serious: Yes (Other)
  Sender: FDA-Public Use
  Company Number: US-JNJFOC-20121112055

PATIENT
  Sex: Male
  Weight: 79.83 kg

DRUGS (6)
  1. INVEGA SUSTENNA [Suspect]
     Indication: PRODUCT USED FOR UNKNOWN INDICATION
     Route: 030
     Dates: start: 20110902
  2. INVEGA SUSTENNA [Suspect]
     Indication: PRODUCT USED FOR UNKNOWN INDICATION
     Route: 030
     Dates: start: 201108
  3. INVEGA SUSTENNA [Suspect]
     Indication: PRODUCT USED FOR UNKNOWN INDICATION
     Route: 030
     Dates: start: 200910
  4. INVEGA SUSTENNA [Suspect]
     Indication: PRODUCT USED FOR UNKNOWN INDICATION
     Route: 030
     Dates: start: 201111, end: 201201
  5. CLOZARIL [Suspect]
     Indication: SCHIZOPHRENIA
     Route: 065
  6. SEROQUEL [Suspect]
     Indication: PRODUCT USED FOR UNKNOWN INDICATION
     Route: 065

REACTIONS (6)
  - Tardive dyskinesia [Unknown]
  - Leukocytosis [Unknown]
  - Ejaculation disorder [Unknown]
  - Electrocardiogram T wave abnormal [Unknown]
  - Electrocardiogram QT prolonged [Unknown]
  - Blood cholesterol increased [Unknown]
